FAERS Safety Report 14843007 (Version 2)
Quarter: 2018Q2

REPORT INFORMATION
  Report Type: Report from Study
  Country: None (occurrence: LB)
  Receive Date: 20180503
  Receipt Date: 20180524
  Transmission Date: 20180711
  Serious: Yes (Hospitalization)
  Sender: FDA-Public Use
  Company Number: LB-ABBVIE-18S-093-2321727-00

PATIENT
  Age: 33 Year
  Sex: Male
  Weight: 80 kg

DRUGS (7)
  1. VIEKIRAX [Suspect]
     Active Substance: OMBITASVIR\PARITAPREVIR\RITONAVIR
     Indication: HEPATITIS C
     Dosage: 2 TABLETS IN THE MORNING
     Route: 048
     Dates: start: 20180130, end: 20180423
  2. RIBAVIRIN. [Suspect]
     Active Substance: RIBAVIRIN
     Indication: HEPATITIS C
     Dosage: 3 TABS MORNING AND 2 TABS EVENING
     Route: 048
     Dates: start: 20180130, end: 20180423
  3. EXVIERA [Suspect]
     Active Substance: DASABUVIR
     Indication: HEPATITIS C
     Dosage: 1 TABLET IN THE MORNING AND 1 TABLET IN THE EVENING
     Route: 048
     Dates: start: 20180130, end: 20180423
  4. BECOZYME [Concomitant]
     Active Substance: VITAMINS
     Indication: PRODUCT USED FOR UNKNOWN INDICATION
     Dosage: 1 TAB MORNING
     Route: 048
  5. RIVOTRIL [Concomitant]
     Active Substance: CLONAZEPAM
     Indication: PRODUCT USED FOR UNKNOWN INDICATION
  6. EUROFER [Concomitant]
     Indication: PRODUCT USED FOR UNKNOWN INDICATION
     Dosage: 1 TAB MORNING
     Route: 048
  7. IRON SUPPLEMENT [Concomitant]
     Active Substance: IRON
     Indication: PRODUCT USED FOR UNKNOWN INDICATION

REACTIONS (10)
  - Glycosylated haemoglobin increased [Not Recovered/Not Resolved]
  - Dyspnoea [Recovered/Resolved]
  - Decreased appetite [Not Recovered/Not Resolved]
  - Bronchitis [Recovered/Resolved]
  - Anaemia [Not Recovered/Not Resolved]
  - Nausea [Recovered/Resolved]
  - Pain [Not Recovered/Not Resolved]
  - Asthenia [Not Recovered/Not Resolved]
  - White blood cell count increased [Recovered/Resolved]
  - Gastrointestinal inflammation [Recovered/Resolved]

NARRATIVE: CASE EVENT DATE: 201802
